FAERS Safety Report 6944600-3 (Version None)
Quarter: 2010Q3

REPORT INFORMATION
  Report Type: 
  Country: None (occurrence: None)
  Receive Date: 20100825
  Receipt Date: 20100825
  Transmission Date: 20110219
  Serious: Yes (Hospitalization)
  Sender: FDA-Public Use
  Company Number: None

PATIENT
  Sex: Male
  Weight: 52.7 kg

DRUGS (5)
  1. BUSULFAN [Suspect]
     Dosage: 640 MG
  2. CYCLOPHOSPHAMIDE [Suspect]
     Dosage: 10000 MG
  3. CYCLOSPORINE [Suspect]
     Dosage: 2895 MG
  4. LYMPHOCYTE IMMUNE GLOBULIN (ATGAM; ATG EQUINE) [Suspect]
     Dosage: 4500 MG
  5. METHOTREXATE [Suspect]
     Dosage: 70 MG

REACTIONS (12)
  - ASCITES [None]
  - BLOOD BILIRUBIN INCREASED [None]
  - BLOOD CREATININE INCREASED [None]
  - FLUID OVERLOAD [None]
  - LUNG INFILTRATION [None]
  - MUCOSAL INFLAMMATION [None]
  - OXYGEN CONSUMPTION INCREASED [None]
  - PARAINFLUENZAE VIRUS INFECTION [None]
  - RESPIRATORY FAILURE [None]
  - UNEVALUABLE EVENT [None]
  - VENOOCCLUSIVE DISEASE [None]
  - WEIGHT INCREASED [None]
